FAERS Safety Report 12348511 (Version 1)
Quarter: 2016Q2

REPORT INFORMATION
  Report Type: Not Available
  Country: None (occurrence: US)
  Receive Date: 20160509
  Receipt Date: 20160509
  Transmission Date: 20160815
  Serious: Yes (Hospitalization)
  Sender: FDA-Public Use
  Company Number: US-AKORN-29709

PATIENT
  Sex: Female

DRUGS (1)
  1. PAREMYD [Suspect]
     Active Substance: HYDROXYAMPHETAMINE HYDROBROMIDE\TROPICAMIDE

REACTIONS (4)
  - Feeling abnormal [None]
  - Chest discomfort [None]
  - Hypoaesthesia oral [None]
  - Hypoaesthesia [Recovered/Resolved]
